FAERS Safety Report 7426639-7 (Version None)
Quarter: 2011Q2

REPORT INFORMATION
  Report Type: 
  Country: None (occurrence: None)
  Receive Date: 20110415
  Receipt Date: 20110415
  Transmission Date: 20111010
  Serious: No
  Sender: FDA-Public Use
  Company Number: None

PATIENT

DRUGS (2)
  1. STERILYTE LIQUID BICARBONATE 84 GM/L CONCENTRATE STOCKWELL [Suspect]
     Indication: DIALYSIS
  2. RENAL PURE LIQUID ACID CONCENTRAT STOCKWELL [Suspect]
     Indication: DIALYSIS

REACTIONS (2)
  - MEDICATION ERROR [None]
  - CIRCUMSTANCE OR INFORMATION CAPABLE OF LEADING TO MEDICATION ERROR [None]
